FAERS Safety Report 15210072 (Version 1)
Quarter: 2018Q3

REPORT INFORMATION
  Report Type: Spontaneous
  Country: FR (occurrence: FR)
  Receive Date: 20180727
  Receipt Date: 20180727
  Transmission Date: 20181010
  Serious: Yes (Hospitalization)
  Sender: FDA-Public Use
  Company Number: FR-PFIZER INC-2018303396

PATIENT
  Age: 66 Year
  Sex: Male
  Weight: 116 kg

DRUGS (11)
  1. PARACETAMOL [Concomitant]
     Active Substance: ACETAMINOPHEN
     Dosage: UNK
     Route: 048
  2. TAMSULOSINE [Concomitant]
     Active Substance: TAMSULOSIN HYDROCHLORIDE
     Dosage: 1 DF, DAILY
     Route: 048
  3. VINORELBINE TARTRATE. [Suspect]
     Active Substance: VINORELBINE TARTRATE
     Indication: BRONCHIAL CARCINOMA
     Dosage: 90 MG, UNK
     Route: 041
     Dates: start: 20180410
  4. DIGOXINE [Concomitant]
     Active Substance: DIGOXIN
     Dosage: UNK
     Route: 041
  5. DILTIAZEM (CHLORHYDRATE DE) [Concomitant]
     Active Substance: DILTIAZEM HYDROCHLORIDE
     Dosage: 120 MG, DAILY
     Route: 048
  6. CISPLATINE TEVA [Suspect]
     Active Substance: CISPLATIN
     Indication: BRONCHIAL CARCINOMA
     Dosage: 100 MG, UNK
     Dates: start: 20180410
  7. FUROSEMIDE. [Concomitant]
     Active Substance: FUROSEMIDE
     Dosage: 40 MG, DAILY
     Route: 048
  8. VALSARTAN. [Concomitant]
     Active Substance: VALSARTAN
     Dosage: 160 MG, DAILY
     Route: 048
  9. VENTOLINE [Concomitant]
     Active Substance: ALBUTEROL
     Dosage: 15 MG, DAILY
     Route: 055
  10. ALPRAZOLAM. [Concomitant]
     Active Substance: ALPRAZOLAM
     Dosage: 0.25 MG, DAILY
     Route: 048
  11. TINZAPARINE SODIQUE ((MAMMIFERE/PORC/MUQUEUSE INTESTINALE)) [Concomitant]
     Dosage: UNK
     Route: 058

REACTIONS (1)
  - Acute kidney injury [Recovered/Resolved]

NARRATIVE: CASE EVENT DATE: 20180419
